FAERS Safety Report 6617257-9 (Version None)
Quarter: 2010Q1

REPORT INFORMATION
  Report Type: 
  Country: None (occurrence: None)
  Receive Date: 20100307
  Receipt Date: 20090911
  Transmission Date: 20100710
  Serious: No
  Sender: FDA-Public Use
  Company Number: US-BAYER-200911718NA

PATIENT
  Sex: Female

DRUGS (2)
  1. MIRENA [Suspect]
     Indication: DRUG USE FOR UNKNOWN INDICATION
     Dosage: CONTINUOUS  (UNABLE TO INSERT AND DISGARDED)
     Route: 015
     Dates: start: 20080620, end: 20080620
  2. MIRENA [Suspect]
     Dosage: CONTINUOUS  (INSERTED IN SURGERY)
     Route: 015
     Dates: start: 20080620

REACTIONS (1)
  - NO ADVERSE EVENT [None]
